FAERS Safety Report 16462461 (Version 3)
Quarter: 2022Q3

REPORT INFORMATION
  Report Type: Spontaneous
  Country: US (occurrence: US)
  Receive Date: 20190621
  Receipt Date: 20220927
  Transmission Date: 20221026
  Serious: Yes (Hospitalization, Other)
  Sender: FDA-Public Use
  Company Number: US-MLMSERVICE-20190610-1796538-2

PATIENT
  Age: 19 Month
  Sex: Female

DRUGS (1)
  1. CLOZAPINE [Suspect]
     Active Substance: CLOZAPINE
     Indication: Molluscum contagiosum
     Dosage: TABLET, SHE TOOK HER FIRST EVENING DOSE
     Route: 048

REACTIONS (12)
  - Product dispensing error [Unknown]
  - Tachycardia [Recovered/Resolved]
  - Somnolence [Recovered/Resolved]
  - Drooling [Recovered/Resolved]
  - Eye movement disorder [Recovered/Resolved]
  - Accidental exposure to product [Unknown]
  - Lethargy [Recovered/Resolved]
  - Product administration error [Unknown]
  - Ataxia [Recovered/Resolved]
  - Accidental overdose [Unknown]
  - Mental status changes [Recovered/Resolved]
  - Toxicity to various agents [Unknown]
